FAERS Safety Report 10411728 (Version 6)
Quarter: 2017Q1

REPORT INFORMATION
  Report Type: Report from Study
  Country: PL (occurrence: PL)
  Receive Date: 20140827
  Receipt Date: 20170316
  Transmission Date: 20170428
  Serious: Yes (Hospitalization, Other)
  Sender: FDA-Public Use
  Company Number: PL-ROCHE-1452764

PATIENT
  Age: 63 Year
  Sex: Female

DRUGS (58)
  1. LUCENTIS [Concomitant]
     Active Substance: RANIBIZUMAB
     Indication: MACULAR DEGENERATION
     Dosage: 0.23 AS REQUIRED?1 INTRAOCULAR INJECTION DAILY
     Route: 031
     Dates: start: 201407, end: 201511
  2. DEXAVEN [Concomitant]
     Active Substance: DEXAMETHASONE
     Route: 042
     Dates: start: 20140827, end: 20140827
  3. DEXAVEN [Concomitant]
     Active Substance: DEXAMETHASONE
     Route: 042
     Dates: start: 20140909, end: 20140909
  4. DEXAVEN [Concomitant]
     Active Substance: DEXAMETHASONE
     Route: 042
     Dates: start: 20150112, end: 20150112
  5. PARACETAMOL [Concomitant]
     Active Substance: ACETAMINOPHEN
     Indication: PROPHYLAXIS
     Route: 048
     Dates: start: 20140818, end: 20140818
  6. PARACETAMOL [Concomitant]
     Active Substance: ACETAMINOPHEN
     Route: 048
     Dates: start: 20141215, end: 20141215
  7. CLEMASTIN [Concomitant]
     Active Substance: CLEMASTINE
     Indication: PROPHYLAXIS
     Route: 042
     Dates: start: 20140818, end: 20140818
  8. LEVOXA [Concomitant]
     Active Substance: LEVOFLOXACIN
     Route: 048
     Dates: start: 20161114, end: 20161118
  9. ATORIS [Suspect]
     Active Substance: ATORVASTATIN CALCIUM
     Indication: HYPERCHOLESTEROLAEMIA
     Route: 048
     Dates: start: 2010, end: 20140818
  10. ASPARGIN [Concomitant]
     Active Substance: ASPARTIC ACID
     Indication: OSTEOPOROSIS
     Dosage: 1 TABLET
     Route: 048
     Dates: start: 2004
  11. MILURIT [Concomitant]
     Active Substance: ALLOPURINOL
     Route: 048
     Dates: start: 20140924, end: 20141019
  12. DEXAVEN [Concomitant]
     Active Substance: DEXAMETHASONE
     Route: 042
     Dates: start: 20141117, end: 20141117
  13. PARACETAMOL [Concomitant]
     Active Substance: ACETAMINOPHEN
     Route: 048
     Dates: start: 20140902, end: 20140902
  14. AMERTIL [Concomitant]
     Route: 048
     Dates: start: 20140909, end: 20140909
  15. AMERTIL [Concomitant]
     Route: 048
     Dates: start: 20140922, end: 20140922
  16. AMERTIL [Concomitant]
     Route: 048
     Dates: start: 20141020, end: 20141020
  17. CALPEROS [Concomitant]
     Active Substance: CALCIUM CARBONATE
     Indication: OSTEOPOROSIS
     Route: 048
     Dates: start: 2004, end: 20140818
  18. DEXAVEN [Concomitant]
     Active Substance: DEXAMETHASONE
     Indication: PROPHYLAXIS
     Route: 042
     Dates: start: 20140817, end: 20140818
  19. PARACETAMOL [Concomitant]
     Active Substance: ACETAMINOPHEN
     Route: 048
     Dates: start: 20140922, end: 20140922
  20. AMERTIL [Concomitant]
     Indication: PROPHYLAXIS
     Route: 048
     Dates: start: 20140818, end: 20140818
  21. AMERTIL [Concomitant]
     Route: 048
     Dates: start: 20150112, end: 20150112
  22. CLEMASTIN [Concomitant]
     Active Substance: CLEMASTINE
     Route: 042
     Dates: start: 20141117, end: 20141117
  23. CLEMASTIN [Concomitant]
     Active Substance: CLEMASTINE
     Route: 042
     Dates: start: 20141215, end: 20141215
  24. CLEMASTIN [Concomitant]
     Active Substance: CLEMASTINE
     Route: 042
     Dates: start: 20150112, end: 20150112
  25. DEXAVEN [Concomitant]
     Active Substance: DEXAMETHASONE
     Route: 042
     Dates: start: 20141020, end: 20141020
  26. DEXAVEN [Concomitant]
     Active Substance: DEXAMETHASONE
     Route: 042
     Dates: start: 20141215, end: 20141215
  27. PARACETAMOL [Concomitant]
     Active Substance: ACETAMINOPHEN
     Route: 048
     Dates: start: 20140827, end: 20140827
  28. PARACETAMOL [Concomitant]
     Active Substance: ACETAMINOPHEN
     Route: 048
     Dates: start: 20141117, end: 20141117
  29. AMERTIL [Concomitant]
     Route: 048
     Dates: start: 20140827, end: 20140827
  30. AMERTIL [Concomitant]
     Route: 048
     Dates: start: 20140902, end: 20140902
  31. CLEMASTIN [Concomitant]
     Active Substance: CLEMASTINE
     Route: 042
     Dates: start: 20141020, end: 20141020
  32. CALPEROS [Concomitant]
     Active Substance: CALCIUM CARBONATE
     Route: 048
     Dates: start: 20141118, end: 20141216
  33. MILURIT [Concomitant]
     Active Substance: ALLOPURINOL
     Route: 048
     Dates: start: 20140828, end: 20140920
  34. MILURIT [Concomitant]
     Active Substance: ALLOPURINOL
     Route: 048
     Dates: start: 20141119, end: 20141214
  35. DEXAVEN [Concomitant]
     Active Substance: DEXAMETHASONE
     Route: 042
     Dates: start: 20140902, end: 20140902
  36. PARACETAMOL [Concomitant]
     Active Substance: ACETAMINOPHEN
     Route: 048
     Dates: start: 20150112, end: 20150112
  37. AMERTIL [Concomitant]
     Route: 048
     Dates: start: 20141117, end: 20141117
  38. AMERTIL [Concomitant]
     Route: 048
     Dates: start: 20141215, end: 20141215
  39. CLEMASTIN [Concomitant]
     Active Substance: CLEMASTINE
     Route: 042
     Dates: start: 20140922, end: 20140922
  40. OBINUTUZUMAB [Suspect]
     Active Substance: OBINUTUZUMAB
     Route: 042
     Dates: start: 20140827
  41. MILURIT [Concomitant]
     Active Substance: ALLOPURINOL
     Route: 048
     Dates: start: 20140817, end: 20140817
  42. MILURIT [Concomitant]
     Active Substance: ALLOPURINOL
     Route: 048
     Dates: start: 20141022, end: 20141116
  43. MILURIT [Concomitant]
     Active Substance: ALLOPURINOL
     Route: 048
     Dates: start: 20141217, end: 20150111
  44. PARACETAMOL [Concomitant]
     Active Substance: ACETAMINOPHEN
     Route: 048
     Dates: start: 20140909, end: 20140909
  45. CLEMASTIN [Concomitant]
     Active Substance: CLEMASTINE
     Route: 042
     Dates: start: 20140902, end: 20140902
  46. BENDAMUSTINE [Suspect]
     Active Substance: BENDAMUSTINE
     Indication: CHRONIC LYMPHOCYTIC LEUKAEMIA
     Dosage: LAST DOSE PRIOR TO SAE WAS 18/AUG/2014
     Route: 042
     Dates: start: 20140818, end: 20140819
  47. BENDAMUSTINE [Suspect]
     Active Substance: BENDAMUSTINE
     Route: 042
     Dates: start: 20140827
  48. BISOCARD [Concomitant]
     Active Substance: BISOPROLOL
     Indication: HYPERTENSION
     Route: 048
     Dates: start: 2012
  49. HYDROCHLOROTHIAZIDE. [Concomitant]
     Active Substance: HYDROCHLOROTHIAZIDE
     Indication: OSTEOPOROSIS
     Route: 048
     Dates: start: 2004
  50. CALPEROS [Concomitant]
     Active Substance: CALCIUM CARBONATE
     Route: 048
     Dates: start: 20150326, end: 20150326
  51. MILURIT [Concomitant]
     Active Substance: ALLOPURINOL
     Indication: PROPHYLAXIS
     Route: 065
     Dates: start: 20140811, end: 20140816
  52. DEXAVEN [Concomitant]
     Active Substance: DEXAMETHASONE
     Route: 042
     Dates: start: 20140922, end: 20140922
  53. PARACETAMOL [Concomitant]
     Active Substance: ACETAMINOPHEN
     Route: 048
     Dates: start: 20141020, end: 20141020
  54. AMERTIL [Concomitant]
     Route: 048
     Dates: start: 20141020, end: 20141020
  55. ENTEROL (POLAND) [Concomitant]
     Route: 048
     Dates: start: 20161114, end: 20161118
  56. OBINUTUZUMAB [Suspect]
     Active Substance: OBINUTUZUMAB
     Indication: CHRONIC LYMPHOCYTIC LEUKAEMIA
     Dosage: LAST DOSE PRIOR TO SAE WAS 100 MG ON 18/AUG/2014
     Route: 042
     Dates: start: 20140818, end: 20140819
  57. CLEMASTIN [Concomitant]
     Active Substance: CLEMASTINE
     Route: 042
     Dates: start: 20140827, end: 20140827
  58. CLEMASTIN [Concomitant]
     Active Substance: CLEMASTINE
     Route: 042
     Dates: start: 20140909, end: 20140909

REACTIONS (2)
  - Hepatitis [Recovered/Resolved]
  - Thrombocytopenia [Recovered/Resolved]

NARRATIVE: CASE EVENT DATE: 20140819
